FAERS Safety Report 6974950-6 (Version None)
Quarter: 2010Q3

REPORT INFORMATION
  Report Type: 
  Country: None (occurrence: None)
  Receive Date: 20100909
  Receipt Date: 20090226
  Transmission Date: 20110219
  Serious: Yes (Other)
  Sender: FDA-Public Use
  Company Number: US-WYE-H07555909

PATIENT
  Age: 58 Year
  Sex: Male
  Weight: 88.62 kg

DRUGS (12)
  1. TORISEL [Suspect]
     Indication: RENAL CELL CARCINOMA
     Route: 042
     Dates: start: 20080318, end: 20080101
  2. TORISEL [Suspect]
     Route: 042
     Dates: start: 20080805, end: 20081230
  3. TORISEL [Suspect]
     Route: 042
     Dates: start: 20090113
  4. HYDROCODONE [Concomitant]
     Indication: BREAKTHROUGH PAIN
     Dosage: AS NEEDED
     Route: 065
  5. ZOLOFT [Concomitant]
     Route: 065
  6. ALFUZOSIN HYDROCHLORIDE [Concomitant]
     Dosage: 10MG AT BEDTIME
     Route: 065
  7. CHANTIX [Concomitant]
  8. MORPHINE [Concomitant]
     Route: 065
  9. PREVACID [Concomitant]
  10. PROSCAR [Concomitant]
  11. GEMFIBROZIL [Concomitant]
  12. ZYRTEC [Concomitant]
     Dosage: DOSE NOT PROVIDED, TAKEN AS NEEDED
     Route: 065

REACTIONS (1)
  - BLOOD TRIGLYCERIDES INCREASED [None]
